FAERS Safety Report 7645204-X (Version None)
Quarter: 2011Q3

REPORT INFORMATION
  Report Type: 
  Country: None (occurrence: None)
  Receive Date: 20110725
  Receipt Date: 20110708
  Transmission Date: 20111222
  Serious: Yes (Hospitalization, Other)
  Sender: FDA-Public Use
  Company Number: GER/GER/11/0019075

PATIENT
  Age: 82 Year
  Sex: Female

DRUGS (3)
  1. MELPERONE (MELPERONE) [Suspect]
     Indication: PRODUCT USED FOR UNKNOWN INDICATION
     Dosage: ORAL
     Route: 048
     Dates: start: 20110316, end: 20110323
  2. IBUPROFEN [Suspect]
     Indication: PRODUCT USED FOR UNKNOWN INDICATION
     Dosage: 600 MG, ORAL
     Route: 048
     Dates: end: 20110323
  3. SIMVASTATIN [Concomitant]

REACTIONS (5)
  - HEPATIC STEATOSIS [None]
  - HYPOKALAEMIA [None]
  - HEPATITIS [None]
  - CHOLELITHIASIS [None]
  - PANCREATIC DISORDER [None]
